FAERS Safety Report 9456760 (Version 1)
Quarter: 2013Q3

REPORT INFORMATION
  Report Type: Spontaneous
  Country: NL (occurrence: NL)
  Receive Date: 20130813
  Receipt Date: 20130813
  Transmission Date: 20140515
  Serious: Yes (Hospitalization)
  Sender: FDA-Public Use
  Company Number: NL-BAXTER-2013BAX031412

PATIENT
  Age: 55 Year
  Sex: Male
  Weight: 94 kg

DRUGS (4)
  1. UROMITEXAN, OPLOSSING VOOR INJECTIE 100 MG/ML [Suspect]
     Indication: PROPHYLAXIS
     Route: 042
     Dates: start: 20130801, end: 20130801
  2. SENDOXAN [Suspect]
     Indication: PRODUCT USED FOR UNKNOWN INDICATION
     Route: 065
  3. OXYCONTIN [Suspect]
     Indication: BONE PAIN
     Route: 048
     Dates: start: 20130301
  4. VALACICLOVIR [Concomitant]
     Indication: PRODUCT USED FOR UNKNOWN INDICATION
     Route: 048
     Dates: start: 20130501

REACTIONS (1)
  - Somnolence [Recovered/Resolved]
